FAERS Safety Report 6197511-8 (Version None)
Quarter: 2009Q2

REPORT INFORMATION
  Report Type: 
  Country: None (occurrence: None)
  Receive Date: 20090521
  Receipt Date: 20090514
  Transmission Date: 20091009
  Serious: Yes (Hospitalization)
  Sender: FDA-Public Use
  Company Number: US-AVENTIS-200912627EU

PATIENT
  Age: 45 Year
  Sex: Male

DRUGS (37)
  1. LASIX [Suspect]
     Dates: start: 20060101
  2. CODE UNBROKEN [Concomitant]
     Route: 048
     Dates: start: 20090120, end: 20090120
  3. CODE UNBROKEN [Concomitant]
     Route: 048
     Dates: start: 20090121, end: 20090301
  4. ALDACTONE [Concomitant]
     Dates: start: 20090205
  5. CYMBALTA [Concomitant]
     Dates: start: 20090205, end: 20090210
  6. ARANESP [Concomitant]
     Dates: start: 20090204, end: 20090204
  7. FLOMAX [Concomitant]
     Dates: start: 20090202
  8. ALBUMIN (HUMAN) [Concomitant]
     Dates: start: 20090131, end: 20090131
  9. CLOPIDOGREL [Concomitant]
     Dates: start: 20090131, end: 20090131
  10. DOBUTAMINE HCL [Concomitant]
     Dates: start: 20090131, end: 20090131
  11. PROTONIX [Concomitant]
     Dates: start: 20090131, end: 20090201
  12. REGLAN [Concomitant]
     Dates: start: 20090131, end: 20090206
  13. ACETAMINOPHEN [Concomitant]
     Dates: start: 20090130, end: 20090130
  14. FENTANYL [Concomitant]
     Dates: start: 20090130, end: 20090201
  15. PROSTIGMIN BROMIDE [Concomitant]
     Dates: start: 20090130, end: 20090130
  16. ROBINUL [Concomitant]
     Dates: start: 20090130, end: 20090130
  17. VANCOMYCIN [Concomitant]
     Dates: start: 20090130, end: 20090130
  18. BENADRYL [Concomitant]
     Dates: start: 20090128, end: 20090205
  19. HIBICLENS [Concomitant]
     Dates: start: 20090128, end: 20090128
  20. HYDRALAZINE HCL [Concomitant]
     Dates: start: 20090128, end: 20090207
  21. VIT D [Concomitant]
     Dates: start: 20090128
  22. XANAX [Concomitant]
     Dates: start: 20090127, end: 20090129
  23. IMDUR [Concomitant]
     Dates: start: 20090124, end: 20090202
  24. HEPARIN [Concomitant]
     Dates: start: 20090121, end: 20090130
  25. NORCO [Concomitant]
     Dates: start: 20090121, end: 20090208
  26. NORVASC [Concomitant]
     Dates: start: 20090120, end: 20090202
  27. ATORVASTATIN CALCIUM [Concomitant]
     Dates: start: 20090119
  28. MORPHINE [Concomitant]
     Dates: start: 20090119, end: 20090129
  29. NEXIUM [Concomitant]
     Dates: start: 20090119, end: 20090210
  30. ZOFRAN [Concomitant]
     Dates: start: 20090119, end: 20090206
  31. CLOPIDOGREL [Concomitant]
     Dates: start: 20071201
  32. COLACE [Concomitant]
     Dates: start: 20071201, end: 20090210
  33. METOPROLOL [Concomitant]
     Dates: start: 20071201
  34. POTASSIUM CHLORIDE [Concomitant]
     Dates: start: 20071201
  35. INSULIN [Concomitant]
     Dates: start: 20060101
  36. ASPIRIN [Concomitant]
     Dates: start: 20090120
  37. LACTULOSE [Concomitant]
     Dates: start: 20090127, end: 20090205

REACTIONS (2)
  - PALPITATIONS [None]
  - SYNCOPE [None]
